FAERS Safety Report 5759391-1 (Version None)
Quarter: 2008Q2

REPORT INFORMATION
  Report Type: 
  Country: None (occurrence: None)
  Receive Date: 20080604
  Receipt Date: 20080604
  Transmission Date: 20081010
  Serious: Yes (Life-Threatening, Hospitalization)
  Sender: FDA-Public Use
  Company Number: None

PATIENT
  Age: 70 Year
  Sex: Female
  Weight: 61.2356 kg

DRUGS (1)
  1. DIGITEK 125 MCG BERTEK [Suspect]
     Indication: ATRIAL FIBRILLATION
     Dosage: 125 MCG (1 TAB) ALT. DAYS MOUTH
     Route: 048
     Dates: start: 20080401, end: 20080421

REACTIONS (5)
  - ASTHENIA [None]
  - CARDIAC DISORDER [None]
  - LETHARGY [None]
  - NAUSEA [None]
  - VOMITING [None]
